FAERS Safety Report 12598059 (Version 1)
Quarter: 2016Q3

REPORT INFORMATION
  Report Type: Report from Study
  Country: ES (occurrence: ES)
  Receive Date: 20160727
  Receipt Date: 20160727
  Transmission Date: 20161109
  Serious: Yes (Hospitalization)
  Sender: FDA-Public Use
  Company Number: PHHO2010ES11419

PATIENT
  Age: 44 Year
  Sex: Male
  Weight: 90.9 kg

DRUGS (1)
  1. EVEROLIMUS [Suspect]
     Active Substance: EVEROLIMUS
     Indication: DIFFUSE LARGE B-CELL LYMPHOMA
     Dosage: 5 MG, BID
     Route: 048
     Dates: start: 20100326, end: 20100729

REACTIONS (3)
  - Chylothorax [Not Recovered/Not Resolved]
  - Atelectasis [Not Recovered/Not Resolved]
  - Concomitant disease progression [Not Recovered/Not Resolved]

NARRATIVE: CASE EVENT DATE: 20100729
